FAERS Safety Report 9735206 (Version 3)
Quarter: 2014Q1

REPORT INFORMATION
  Report Type: Spontaneous
  Country: FR (occurrence: None)
  Receive Date: 20131204
  Receipt Date: 20140114
  Transmission Date: 20141002
  Serious: Yes (Hospitalization)
  Sender: FDA-Public Use
  Company Number: FR-SEPTODONT-201301617

PATIENT
  Age: 25 Year
  Sex: Female

DRUGS (2)
  1. DELTAZINE [Suspect]
     Indication: LOCAL ANAESTHESIA
     Dosage: DENTAL
     Route: 004
     Dates: start: 20130920, end: 20130920
  2. IRM (ZINC OXIDE; POLY(ETHYLACRYLATE, METHYLMETHACRYLATE) 2:1; EUGENOL; ACETIC ACID) [Concomitant]

REACTIONS (13)
  - Malaise [None]
  - Loss of consciousness [None]
  - Eye injury [None]
  - Face injury [None]
  - Fall [None]
  - Head injury [None]
  - Fatigue [None]
  - Pain [None]
  - Scar [None]
  - Hypoglycaemia [None]
  - Shock [None]
  - Laceration [None]
  - Emotional disorder [None]
